FAERS Safety Report 9783471 (Version 2)
Quarter: 2013Q4

REPORT INFORMATION
  Report Type: Report from Study
  Country: DE (occurrence: DE)
  Receive Date: 20131226
  Receipt Date: 20131226
  Transmission Date: 20140711
  Serious: Yes (Hospitalization)
  Sender: FDA-Public Use
  Company Number: DE-009507513-1001USA00494

PATIENT
  Age: 66 Year
  Sex: Male
  Weight: 77.2 kg

DRUGS (8)
  1. BLINDED EZETIMIBE (+) SIMVASTATIN [Suspect]
     Indication: ACUTE CORONARY SYNDROME
     Dosage: UNK
     Route: 048
     Dates: start: 20090908
  2. BLINDED THERAPY [Suspect]
     Dosage: UNK
     Route: 048
     Dates: start: 20090908
  3. ASPIRIN [Concomitant]
     Dosage: TOTAL DAILY DOSE: 100 MG
     Route: 048
     Dates: start: 20090908
  4. METOPROLOL [Concomitant]
     Dosage: TOTAL DAILY DOSE: 95 MG
     Route: 048
     Dates: start: 20090908
  5. PLAVIX [Concomitant]
     Dosage: 75 MG, QD
     Route: 048
     Dates: start: 20090908
  6. RAMIPRIL [Concomitant]
     Dosage: TOTAL DAILY DOSE: 10 MG
     Route: 048
     Dates: start: 20110301
  7. NEXIUM [Concomitant]
     Dosage: TOTAL DAILY DOSE: 40 MG
     Route: 048
     Dates: start: 20110825
  8. TILIDIN [Concomitant]
     Dosage: TOTAL DAILY DOSE: 4X20 DROPS
     Route: 048
     Dates: start: 20110825

REACTIONS (2)
  - Cholelithiasis [Recovered/Resolved]
  - Cholecystitis [Recovered/Resolved]
